FAERS Safety Report 7972867-1 (Version None)
Quarter: 2011Q4

REPORT INFORMATION
  Report Type: 
  Country: None (occurrence: None)
  Receive Date: 20111213
  Receipt Date: 20111207
  Transmission Date: 20120403
  Serious: Yes (Other)
  Sender: FDA-Public Use
  Company Number: US-VERTEX PHARMACEUTICALS INC.-AE-2011-004607

PATIENT
  Sex: Female

DRUGS (3)
  1. PEG-INTRON [Concomitant]
     Indication: HEPATITIS C
     Route: 058
  2. RIBAVIRIN [Concomitant]
     Indication: HEPATITIS C
  3. INCIVEK [Suspect]
     Indication: HEPATITIS C

REACTIONS (5)
  - RASH [None]
  - LIP SWELLING [None]
  - BLISTER [None]
  - CHAPPED LIPS [None]
  - OEDEMA PERIPHERAL [None]
